FAERS Safety Report 20934741 (Version 1)
Quarter: 2022Q2

REPORT INFORMATION
  Report Type: Report from Study
  Country: US (occurrence: US)
  Receive Date: 20220608
  Receipt Date: 20220608
  Transmission Date: 20220720
  Serious: Yes (Hospitalization)
  Sender: FDA-Public Use
  Company Number: US-GILEAD-2022-0584572

PATIENT
  Age: 68 Year
  Sex: Female
  Weight: 74.8 kg

DRUGS (19)
  1. REMDESIVIR [Suspect]
     Active Substance: REMDESIVIR
     Indication: COVID-19
     Dosage: 200 MG, ONCE
     Route: 042
     Dates: start: 20220121, end: 20220121
  2. REMDESIVIR [Suspect]
     Active Substance: REMDESIVIR
     Dosage: 100 MG, QD
     Route: 042
     Dates: start: 20220122, end: 20220125
  3. CYPROHEPTADINE [Suspect]
     Active Substance: CYPROHEPTADINE
     Indication: COVID-19
     Dosage: 187 MG, BID
     Route: 050
     Dates: start: 20220121, end: 20220126
  4. DEXAMETHASONE [Concomitant]
     Active Substance: DEXAMETHASONE
  5. HEPARIN [Concomitant]
     Active Substance: HEPARIN SODIUM
  6. LORAZEPAM [Concomitant]
     Active Substance: LORAZEPAM
  7. ACETAMINOPHEN [Concomitant]
     Active Substance: ACETAMINOPHEN
  8. AZITHROMYCIN [Concomitant]
     Active Substance: AZITHROMYCIN
  9. CEFTRIAXONE [Concomitant]
     Active Substance: CEFTRIAXONE
  10. CISATRACURIUM [Concomitant]
     Active Substance: CISATRACURIUM
  11. DOXYCYCLINE [Concomitant]
     Active Substance: DOXYCYCLINE
  12. ENOXAPARIN [Concomitant]
     Active Substance: ENOXAPARIN
  13. ETOMIDATE [Concomitant]
     Active Substance: ETOMIDATE
  14. ALBUTEROL\IPRATROPIUM [Concomitant]
     Active Substance: ALBUTEROL\IPRATROPIUM
  15. LEVOFLOXACIN [Concomitant]
     Active Substance: LEVOFLOXACIN
  16. MEROPENEM [Concomitant]
     Active Substance: MEROPENEM
  17. PANTOPRAZOLE [Concomitant]
     Active Substance: PANTOPRAZOLE
  18. VANCOMYCIN [Concomitant]
     Active Substance: VANCOMYCIN
  19. VECURONIUM [Concomitant]
     Active Substance: VECURONIUM BROMIDE

REACTIONS (1)
  - Hypernatraemia [Unknown]

NARRATIVE: CASE EVENT DATE: 20220123
